FAERS Safety Report 21988316 (Version 2)
Quarter: 2024Q3

REPORT INFORMATION
  Report Type: Report from Study
  Country: US (occurrence: US)
  Receive Date: 20230214
  Receipt Date: 20240819
  Transmission Date: 20241016
  Serious: Yes (Hospitalization)
  Sender: ABBVIE
  Company Number: US-ABBVIE-4306728

PATIENT
  Age: 38 Year
  Sex: Male

DRUGS (4)
  1. HUMIRA [Suspect]
     Active Substance: ADALIMUMAB
     Indication: Psoriasis
     Route: 058
     Dates: start: 202302, end: 202302
  2. HUMIRA [Suspect]
     Active Substance: ADALIMUMAB
     Dosage: INJECT 40 MG (1 INJECTOR) SUBCUTANEOUSLY EVERY 14 DAYS
     Route: 058
  3. FOLIC ACID [Concomitant]
     Active Substance: FOLIC ACID
     Indication: Product used for unknown indication
  4. METHOTREXATE [Concomitant]
     Active Substance: METHOTREXATE
     Indication: Product used for unknown indication

REACTIONS (7)
  - Colitis [Unknown]
  - Drug ineffective [Unknown]
  - Pain [Unknown]
  - Gait inability [Unknown]
  - Gait disturbance [Unknown]
  - Decreased appetite [Unknown]
  - Infection [Unknown]

NARRATIVE: CASE EVENT DATE: 20230201
